FAERS Safety Report 4716988-5 (Version None)
Quarter: 2005Q3

REPORT INFORMATION
  Report Type: 
  Country: None (occurrence: None)
  Receive Date: 20050712
  Receipt Date: 20041008
  Transmission Date: 20060218
  Serious: Yes (Other)
  Sender: FDA-Public Use
  Company Number: PHEH2004US10936

PATIENT
  Sex: 0

DRUGS (1)
  1. GLEEVEC [Suspect]
     Dosage: 400 MG, PER DAY, UNK
     Route: 065

REACTIONS (3)
  - ABASIA [None]
  - BACK PAIN [None]
  - BUTTOCK PAIN [None]
